FAERS Safety Report 17105989 (Version 2)
Quarter: 2019Q4

REPORT INFORMATION
  Report Type: Report from Study
  Country: US (occurrence: US)
  Receive Date: 20191203
  Receipt Date: 20191212
  Transmission Date: 20200122
  Serious: Yes (Other)
  Sender: FDA-Public Use
  Company Number: NVSC2019US056623

PATIENT
  Age: 75 Year
  Sex: Male

DRUGS (1)
  1. ENTRESTO [Suspect]
     Active Substance: SACUBITRIL\VALSARTAN
     Indication: BLOOD PRESSURE DECREASED
     Dosage: 1 DF, BID (24 MG OF SACUBITRIL/ 26 MG OF VALSARTAN), BID
     Route: 048
     Dates: start: 201907

REACTIONS (3)
  - Product use in unapproved indication [Unknown]
  - Atrial fibrillation [Unknown]
  - Joint injury [Unknown]

NARRATIVE: CASE EVENT DATE: 201911
